FAERS Safety Report 8242351-9 (Version None)
Quarter: 2012Q1

REPORT INFORMATION
  Report Type: 
  Country: None (occurrence: None)
  Receive Date: 20120329
  Receipt Date: 20120321
  Transmission Date: 20120608
  Serious: Yes (Hospitalization, Other)
  Sender: FDA-Public Use
  Company Number: US-ASTELLAS-2012US003026

PATIENT
  Age: 52 Year
  Sex: Male
  Weight: 116 kg

DRUGS (11)
  1. CYMBALTA [Concomitant]
     Indication: DEPRESSION
     Dosage: 20 MG, BID
     Route: 048
  2. REGLAN [Concomitant]
     Indication: DYSPEPSIA
     Dosage: 10 MG, Q4H
  3. ERLOTINIB HYDROCHLORIDE [Suspect]
     Indication: NON-SMALL CELL LUNG CANCER
     Dosage: 150 MG, UID/QD
     Route: 048
     Dates: start: 20120209, end: 20120321
  4. DASATINIB [Suspect]
     Indication: NON-SMALL CELL LUNG CANCER
     Dosage: 50 MG, UID/QD
     Route: 048
     Dates: start: 20120209, end: 20120321
  5. DASATINIB [Suspect]
     Dosage: 20 MG, UID/QD
     Route: 048
     Dates: start: 20120209, end: 20120321
  6. OXYCONTIN [Concomitant]
     Indication: PAIN
     Dosage: 120 MG, Q8H
     Route: 048
     Dates: end: 20120112
  7. REGLAN [Concomitant]
     Indication: GASTROOESOPHAGEAL REFLUX DISEASE
  8. OXYCODONE HCL [Concomitant]
     Indication: PAIN
     Dosage: 15 MG, Q4H PRN
     Route: 048
  9. OXYCODONE HCL [Concomitant]
     Indication: DYSPNOEA
  10. SENNA [Concomitant]
     Indication: CONSTIPATION
     Dosage: 2 DF, BID
     Route: 048
     Dates: end: 20120111
  11. TESSALON [Concomitant]
     Indication: COUGH
     Dosage: 200 MG, Q8H PRN
     Route: 048

REACTIONS (14)
  - NEURALGIA [None]
  - RADIATION PNEUMONITIS [None]
  - ATELECTASIS [None]
  - PNEUMONIA [None]
  - CARDIAC FAILURE CONGESTIVE [None]
  - PLEURAL EFFUSION [None]
  - NON-CARDIAC CHEST PAIN [None]
  - HYPOXIA [None]
  - PYREXIA [None]
  - PERICARDIAL EFFUSION [None]
  - DYSPNOEA [None]
  - NEUROPATHY PERIPHERAL [None]
  - OEDEMA PERIPHERAL [None]
  - HILAR LYMPHADENOPATHY [None]
